FAERS Safety Report 6975754-0 (Version None)
Quarter: 2010Q3

REPORT INFORMATION
  Report Type: 
  Country: None (occurrence: None)
  Receive Date: 20100910
  Receipt Date: 20090327
  Transmission Date: 20110219
  Serious: No
  Sender: FDA-Public Use
  Company Number: US-WYE-H08749009

PATIENT
  Sex: Female
  Weight: 79.9 kg

DRUGS (1)
  1. PRISTIQ [Suspect]
     Indication: ANXIETY
     Route: 048
     Dates: start: 20090313, end: 20090319

REACTIONS (6)
  - ANXIETY [None]
  - CONDITION AGGRAVATED [None]
  - DECREASED APPETITE [None]
  - DISTURBANCE IN ATTENTION [None]
  - FEELING JITTERY [None]
  - TREMOR [None]
